FAERS Safety Report 4289404-8 (Version None)
Quarter: 2004Q1

REPORT INFORMATION
  Report Type: 
  Country: None (occurrence: None)
  Receive Date: 20040206
  Receipt Date: 20040129
  Transmission Date: 20041129
  Serious: Yes (Death)
  Sender: FDA-Public Use
  Company Number: NSADSS2002015156

PATIENT
  Age: 30 Year
  Sex: Female
  Weight: 55.3388 kg

DRUGS (8)
  1. REMICADE [Suspect]
     Indication: COLITIS ULCERATIVE
     Dosage: 5 MG/KG, 1 IN 1 AS NECESSARY INTRAVENOUS DRIP
     Route: 041
     Dates: start: 20020501, end: 20020501
  2. REMICADE [Suspect]
     Indication: CROHN'S DISEASE
     Dosage: 5 MG/KG, 1 IN 1 AS NECESSARY INTRAVENOUS DRIP
     Route: 041
     Dates: start: 20020501, end: 20020501
  3. REMICADE [Suspect]
     Indication: INFLAMMATORY BOWEL DISEASE
     Dosage: 5 MG/KG, 1 IN 1 AS NECESSARY INTRAVENOUS DRIP
     Route: 041
     Dates: start: 20020501, end: 20020501
  4. COLOZOL (ALL OTHER THERAPEUTIC PRODUCTS) [Concomitant]
  5. FLAGYL [Concomitant]
  6. ERYTHROMYCIN [Concomitant]
  7. PENTASA [Concomitant]
  8. PREDNISONE [Concomitant]

REACTIONS (1)
  - BLOOD PRESSURE DIASTOLIC DECREASED [None]
